FAERS Safety Report 6024849-7 (Version None)
Quarter: 2008Q4

REPORT INFORMATION
  Report Type: 
  Country: None (occurrence: None)
  Receive Date: 20081231
  Receipt Date: 20081223
  Transmission Date: 20090506
  Serious: Yes (Other)
  Sender: FDA-Public Use
  Company Number: US-TYCO HEALTHCARE/MALLINCKRODT-T200802163

PATIENT
  Sex: Male

DRUGS (2)
  1. ULTRA-TECHNEKOW [Suspect]
     Indication: DRUG USE FOR UNKNOWN INDICATION
     Dosage: UNK
     Dates: start: 20081223
  2. TECHNETIUM 99M SULFUR COLLOID INJ [Suspect]
     Indication: DRUG USE FOR UNKNOWN INDICATION
     Dosage: UNK
     Dates: start: 20081223

REACTIONS (2)
  - CONVULSION [None]
  - SYNCOPE [None]
